FAERS Safety Report 6666422-3 (Version None)
Quarter: 2010Q1

REPORT INFORMATION
  Report Type: 
  Country: None (occurrence: None)
  Receive Date: 20100331
  Receipt Date: 20100315
  Transmission Date: 20100710
  Serious: Yes (Death, Other)
  Sender: FDA-Public Use
  Company Number: MC201000096

PATIENT

DRUGS (1)
  1. ANGIOMAX [Suspect]
     Indication: PERCUTANEOUS CORONARY INTERVENTION

REACTIONS (13)
  - CARDIAC PROCEDURE COMPLICATION [None]
  - CORONARY ARTERY STENOSIS [None]
  - EPISTAXIS [None]
  - EYE HAEMORRHAGE [None]
  - GASTROINTESTINAL HAEMORRHAGE [None]
  - HAEMOGLOBIN DECREASED [None]
  - HAEMORRHAGE INTRACRANIAL [None]
  - HAEMORRHAGE URINARY TRACT [None]
  - INCISION SITE HAEMORRHAGE [None]
  - MYOCARDIAL INFARCTION [None]
  - REPERFUSION INJURY [None]
  - RETROPERITONEAL HAEMORRHAGE [None]
  - VESSEL PERFORATION [None]
